FAERS Safety Report 5768225-0 (Version None)
Quarter: 2008Q2

REPORT INFORMATION
  Report Type: 
  Country: None (occurrence: None)
  Receive Date: 20080609
  Receipt Date: 20080529
  Transmission Date: 20081010
  Serious: Yes (Death)
  Sender: FDA-Public Use
  Company Number: GXKR2008AT04880

PATIENT
  Age: 58 Year
  Sex: Female

DRUGS (3)
  1. CYCLOSPORINE [Suspect]
     Indication: IMMUNOSUPPRESSION
  2. MYCOPHENOLATE MOFETIL [Suspect]
     Indication: IMMUNOSUPPRESSION
  3. PREDNISOLONE [Suspect]
     Indication: IMMUNOSUPPRESSION

REACTIONS (8)
  - CYTOMEGALOVIRUS INFECTION [None]
  - CYTOMEGALOVIRUS TEST [None]
  - ENTEROBACTER SEPSIS [None]
  - GRAFT DYSFUNCTION [None]
  - HEPATIC ARTERY ANEURYSM [None]
  - INFECTION [None]
  - MULTI-ORGAN FAILURE [None]
  - PSEUDALLESCHERIA INFECTION [None]
